FAERS Safety Report 8978014 (Version 1)
Quarter: 2012Q4

REPORT INFORMATION
  Report Type: 
  Country: HU (occurrence: HU)
  Receive Date: 20121220
  Receipt Date: 20121220
  Transmission Date: 20130627
  Serious: No
  Sender: FDA-Public Use
  Company Number: HU-MERCK-1212HUN006237

PATIENT
  Age: 52 Year
  Sex: Male

DRUGS (4)
  1. PEGINTRON [Suspect]
     Indication: HEPATITIS C
     Dosage: 150 Microgram, qw 50 micrograms powder and sovent for solution
     Route: 058
     Dates: start: 2004, end: 2005
  2. PEGINTRON [Suspect]
     Dosage: 150 Microgram, qw, 50 micrograms powder and sovent for solution
     Route: 058
     Dates: start: 2007, end: 2008
  3. REBETOL [Suspect]
     Indication: HEPATITIS C
     Dosage: 1200 mg, qd
     Dates: start: 2004, end: 2005
  4. REBETOL [Suspect]
     Dosage: 1200 mg, qd
     Dates: start: 2007, end: 2008

REACTIONS (6)
  - Diarrhoea [Unknown]
  - Flatulence [Recovered/Resolved]
  - Dizziness [Recovered/Resolved]
  - Diarrhoea [Unknown]
  - Alanine aminotransferase increased [Unknown]
  - Alanine aminotransferase increased [Unknown]
